FAERS Safety Report 7860890-7 (Version None)
Quarter: 2011Q4

REPORT INFORMATION
  Report Type: 
  Country: None (occurrence: None)
  Receive Date: 20111027
  Receipt Date: 20111018
  Transmission Date: 20120403
  Serious: Yes (Hospitalization)
  Sender: FDA-Public Use
  Company Number: NL-ASTRAZENECA-2011SE62857

PATIENT
  Age: 52 Year
  Sex: Female
  Weight: 71 kg

DRUGS (4)
  1. LOSARTAN POTASSIUM [Concomitant]
     Dosage: EENMAAL PER DAG
     Route: 048
     Dates: start: 20090101
  2. PULMICORT [Suspect]
     Indication: ASTHMA
     Route: 055
     Dates: start: 19860101
  3. PREDNISONE [Suspect]
     Indication: BRONCHITIS
     Route: 048
     Dates: start: 20080101
  4. OXIS TURBUHALER [Concomitant]
     Dosage: TWEE MAAL PER DAG
     Route: 055
     Dates: start: 19860101

REACTIONS (2)
  - OSTEOARTHRITIS [None]
  - CATARACT [None]
